FAERS Safety Report 7033915-9 (Version None)
Quarter: 2010Q4

REPORT INFORMATION
  Report Type: 
  Country: None (occurrence: None)
  Receive Date: 20101005
  Receipt Date: 20100928
  Transmission Date: 20110411
  Serious: Yes (Death)
  Sender: FDA-Public Use
  Company Number: 2010US003966

PATIENT
  Sex: Female

DRUGS (2)
  1. PROGRAF [Suspect]
     Indication: RENAL TRANSPLANT
     Dosage: 3 MG IN AM AND 2 MG IN PM, ORAL
     Route: 048
     Dates: start: 20061215
  2. CELLCEPT (MYCOPHENOLATE MOFETIL) [Concomitant]

REACTIONS (1)
  - METASTATIC NEOPLASM [None]
